FAERS Safety Report 21312752 (Version 1)
Quarter: 2022Q3

REPORT INFORMATION
  Report Type: Spontaneous
  Country: US (occurrence: None)
  Receive Date: 20220908
  Receipt Date: 20220908
  Transmission Date: 20221027
  Serious: Yes (Hospitalization)
  Sender: FDA-Public Use
  Company Number: None

PATIENT
  Age: 29 Year
  Sex: Female

DRUGS (2)
  1. AMBRISENTAN [Suspect]
     Active Substance: AMBRISENTAN
     Indication: Pulmonary hypertension
     Dosage: FREQUENCY : DAILY;?
     Route: 048
     Dates: start: 20190314
  2. AMBRISENTAN [Concomitant]
     Active Substance: AMBRISENTAN
     Dates: start: 20190314

REACTIONS (8)
  - Chest pain [None]
  - Abdominal pain upper [None]
  - Paraesthesia [None]
  - Paraesthesia [None]
  - Blindness [None]
  - Gait inability [None]
  - Vomiting [None]
  - Illness [None]

NARRATIVE: CASE EVENT DATE: 20220908
